FAERS Safety Report 15027573 (Version 3)
Quarter: 2025Q3

REPORT INFORMATION
  Report Type: Spontaneous
  Country: EU (occurrence: EU)
  Receive Date: 20180619
  Receipt Date: 20250904
  Transmission Date: 20251021
  Serious: Yes (Death)
  Sender: ROCHE
  Company Number: EU-002147023-PHHY2018FR000841

PATIENT
  Age: 57 Year
  Sex: Female

DRUGS (10)
  1. MYCOPHENOLATE MOFETIL [Suspect]
     Active Substance: MYCOPHENOLATE MOFETIL
     Indication: Immunosuppressant drug therapy
     Route: 065
  2. MYCOPHENOLATE MOFETIL [Suspect]
     Active Substance: MYCOPHENOLATE MOFETIL
     Indication: Heart transplant
     Dosage: 1000 OT, QD
     Route: 065
  3. RITUXIMAB [Suspect]
     Active Substance: RITUXIMAB
     Indication: Transplant rejection
     Route: 065
  4. METHYLPREDNISOLONE [Suspect]
     Active Substance: METHYLPREDNISOLONE
     Indication: Transplant rejection
     Dosage: 500-1000 MG PER DAY DURING 3 DAYS INFUSION
     Route: 042
  5. PRIVIGEN [Suspect]
     Active Substance: HUMAN IMMUNOGLOBULIN G
     Indication: Transplant rejection
     Route: 042
  6. THYMOGLOBULINE [Suspect]
     Active Substance: LAPINE T-LYMPHOCYTE IMMUNE GLOBULIN
     Indication: Transplant rejection
     Route: 065
  7. CYCLOSPORINE [Suspect]
     Active Substance: CYCLOSPORINE
     Indication: Heart transplant
     Route: 065
  8. CYCLOSPORINE [Suspect]
     Active Substance: CYCLOSPORINE
     Indication: Immunosuppressant drug therapy
  9. DOBUTAMINE [Concomitant]
     Active Substance: DOBUTAMINE HYDROCHLORIDE
     Indication: Cardiogenic shock
     Route: 042
  10. ASPIRIN [Concomitant]
     Active Substance: ASPIRIN

REACTIONS (5)
  - Septic shock [Fatal]
  - Complications of transplanted heart [Fatal]
  - Cardiogenic shock [Fatal]
  - Transplant rejection [Fatal]
  - Off label use [Unknown]
